FAERS Safety Report 12720856 (Version 1)
Quarter: 2016Q3

REPORT INFORMATION
  Report Type: Spontaneous
  Country: US (occurrence: US)
  Receive Date: 20160907
  Receipt Date: 20160907
  Transmission Date: 20161109
  Serious: No
  Sender: FDA-Public Use
  Company Number: US-COL_20624_2015

PATIENT

DRUGS (1)
  1. COLGATE TOTAL CLEAN MINT [Suspect]
     Active Substance: SODIUM FLUORIDE\TRICLOSAN
     Indication: PRODUCT USED FOR UNKNOWN INDICATION
     Dosage: NI/ NI/
     Route: 048

REACTIONS (3)
  - Oral pain [Unknown]
  - Facial pain [Unknown]
  - Glossodynia [Unknown]

NARRATIVE: CASE EVENT DATE: 201507
